FAERS Safety Report 12384401 (Version 1)
Quarter: 2016Q2

REPORT INFORMATION
  Report Type: Spontaneous
  Country: US (occurrence: None)
  Receive Date: 20160518
  Receipt Date: 20160518
  Transmission Date: 20160815
  Serious: No
  Sender: FDA-Public Use
  Company Number: None

PATIENT
  Age: 47 Year
  Sex: Female

DRUGS (4)
  1. PENTOXIFYLLIN ER [Concomitant]
  2. TYKERB [Suspect]
     Active Substance: LAPATINIB DITOSYLATE
     Indication: BREAST CANCER
     Route: 048
     Dates: start: 20160418
  3. KEPPRA [Concomitant]
     Active Substance: LEVETIRACETAM
  4. VIT E COMPLEX [Concomitant]

REACTIONS (1)
  - Onychoclasis [None]

NARRATIVE: CASE EVENT DATE: 20151013
